FAERS Safety Report 8602683 (Version 2)
Quarter: 2013Q1

REPORT INFORMATION
  Report Type: Spontaneous
  Country: GB (occurrence: None)
  Receive Date: 20120525
  Receipt Date: 20121120
  Transmission Date: 20140127
  Serious: Yes (Other)
  Sender: FDA-Public Use
  Company Number: AUR-APL-2012-02324

PATIENT
  Age: 63 Year
  Sex: Male

DRUGS (1)
  1. CETIRIZINE [Suspect]
     Dosage: (10 MG, 1 IN 1 D)

REACTIONS (5)
  - TUBULOINTERSTITIAL NEPHRITIS [None]
  - LETHARGY [None]
  - THIRST [None]
  - NOCTURIA [None]
  - RENAL FAILURE ACUTE [None]
